FAERS Safety Report 5104315-3 (Version None)
Quarter: 2006Q3

REPORT INFORMATION
  Report Type: 
  Country: None (occurrence: None)
  Receive Date: 20060914
  Receipt Date: 20030226
  Transmission Date: 20061208
  Serious: Yes (Life-Threatening, Hospitalization)
  Sender: FDA-Public Use
  Company Number: JP-ABBOTT-03P-087-0212224-00

PATIENT
  Sex: Male

DRUGS (18)
  1. KALETRA [Suspect]
     Indication: HIV INFECTION
     Route: 048
     Dates: start: 20011210, end: 20011220
  2. KALETRA [Suspect]
     Route: 048
     Dates: start: 20020408, end: 20040119
  3. KALETRA [Suspect]
     Route: 048
     Dates: start: 20040526, end: 20040921
  4. LAMIVUDINE [Suspect]
     Indication: HIV INFECTION
     Route: 048
     Dates: start: 20010401, end: 20011022
  5. LAMIVUDINE [Suspect]
     Route: 048
     Dates: start: 20011221, end: 20020331
  6. LAMIVUDINE [Suspect]
     Dates: start: 20040526, end: 20040726
  7. STAVUDINE [Suspect]
     Indication: HIV INFECTION
     Route: 048
     Dates: start: 20010401
  8. STAVUDINE [Suspect]
     Dates: start: 20040727, end: 20040921
  9. EFAVIRENZ [Suspect]
     Indication: HIV INFECTION
     Route: 048
     Dates: start: 20011023, end: 20011209
  10. NELFINAVIR MESILATE [Suspect]
     Indication: HIV INFECTION
     Route: 048
     Dates: start: 20010401, end: 20011022
  11. TENOFOVIR [Suspect]
     Indication: HIV INFECTION
     Route: 048
     Dates: start: 20020722, end: 20040726
  12. DIDANOSINE [Suspect]
     Indication: HIV INFECTION
     Route: 048
     Dates: start: 20011023, end: 20030624
  13. DIDANOSINE [Suspect]
     Route: 048
     Dates: start: 20030625, end: 20040526
  14. ATAZANAVIR [Suspect]
     Indication: HIV INFECTION
     Route: 048
     Dates: start: 20040119, end: 20040526
  15. ABACAVIR [Suspect]
     Indication: HIV INFECTION
     Dates: start: 20040727, end: 20040921
  16. RITONAVIR [Concomitant]
     Indication: HIV INFECTION
     Route: 048
     Dates: start: 20040119
  17. FREEZE DRIED HUMAN BLOOD COAGULATION FACTOR IX [Concomitant]
     Indication: FACTOR VIII DEFICIENCY
     Dates: start: 20030401, end: 20040930
  18. RIBAVIRIN [Concomitant]
     Indication: DRUG USE FOR UNKNOWN INDICATION

REACTIONS (15)
  - ABDOMINAL DISTENSION [None]
  - BLOOD BILIRUBIN INCREASED [None]
  - DIARRHOEA [None]
  - FANCONI SYNDROME [None]
  - FAT ATROPHY [None]
  - GAIT DISTURBANCE [None]
  - GASTRIC ULCER [None]
  - HEPATIC FAILURE [None]
  - JAUNDICE [None]
  - LIPODYSTROPHY ACQUIRED [None]
  - MALAISE [None]
  - MELAENA [None]
  - MUSCULAR WEAKNESS [None]
  - NERVOUS SYSTEM DISORDER [None]
  - VASODILATATION [None]
